FAERS Safety Report 9232915 (Version 1)
Quarter: 2013Q1

REPORT INFORMATION
  Report Type: Spontaneous
  Country: US (occurrence: None)
  Receive Date: 20121031
  Receipt Date: 20121031
  Transmission Date: 20140127
  Serious: Yes (Other)
  Sender: FDA-Public Use
  Company Number: PHEH2012US013788

PATIENT
  Age: 28 Year
  Sex: Female
  Weight: 107.9 kg

DRUGS (3)
  1. GILENYA (FTY)CAPSULE, 0.5MG [Suspect]
     Indication: MULTIPLE SCLEROSIS
     Route: 048
     Dates: start: 20120710
  2. AMITRIPTYLINE (AMITRIPTYLINE) [Concomitant]
  3. MAXAL-MLT (RIZATRIPTAN BENZOATE) [Concomitant]

REACTIONS (2)
  - Heart rate decreased [None]
  - Fatigue [None]
